FAERS Safety Report 5768496-0 (Version None)
Quarter: 2008Q2

REPORT INFORMATION
  Report Type: 
  Country: None (occurrence: None)
  Receive Date: 20080612
  Receipt Date: 20080305
  Transmission Date: 20081010
  Serious: No
  Sender: FDA-Public Use
  Company Number: US-ABBOTT-08P-163-0441197-00

PATIENT
  Sex: Female
  Weight: 93 kg

DRUGS (7)
  1. HUMIRA [Suspect]
     Indication: CROHN'S DISEASE
     Route: 058
     Dates: start: 20080303
  2. NOVOLOG [Concomitant]
     Indication: DIABETES MELLITUS
     Route: 058
  3. HYDROCHLOROTHIAZIDE [Concomitant]
     Indication: HYPERTENSION
     Route: 048
  4. OMALIZUMAB [Concomitant]
     Indication: ASTHMA
     Route: 048
  5. FUROSEMIDE [Concomitant]
     Indication: SWELLING
     Route: 048
  6. CARVEDILOL [Concomitant]
     Indication: CARDIAC DISORDER
  7. GLYCERYL TRINITRATE [Concomitant]
     Indication: ANGINA PECTORIS
     Route: 048

REACTIONS (6)
  - ANOREXIA [None]
  - DISTURBANCE IN ATTENTION [None]
  - JOINT SWELLING [None]
  - NERVOUSNESS [None]
  - OEDEMA PERIPHERAL [None]
  - RESTLESSNESS [None]
